FAERS Safety Report 5092676-3 (Version None)
Quarter: 2006Q3

REPORT INFORMATION
  Report Type: 
  Country: None (occurrence: None)
  Receive Date: 20060830
  Receipt Date: 20060825
  Transmission Date: 20061208
  Serious: Yes (Other)
  Sender: FDA-Public Use
  Company Number: US-JNJFOC-20060805751

PATIENT
  Sex: Female
  Weight: 58.06 kg

DRUGS (8)
  1. MOTRIN [Suspect]
     Route: 048
  2. MOTRIN [Suspect]
     Indication: MUSCLE SPASMS
     Route: 048
  3. THYROID TAB [Concomitant]
  4. HYPERTENSION MEDICATION [Concomitant]
  5. ASCORBIC ACID [Concomitant]
     Indication: VITAMIN SUPPLEMENTATION
  6. GLUCOSAMINE [Concomitant]
  7. M.V.I. [Concomitant]
  8. FISH OIL [Concomitant]

REACTIONS (1)
  - MIGRAINE WITH AURA [None]
